FAERS Safety Report 8502993-X (Version None)
Quarter: 2012Q3

REPORT INFORMATION
  Report Type: 
  Country: None (occurrence: None)
  Receive Date: 20120711
  Receipt Date: 20120704
  Transmission Date: 20120928
  Serious: Yes (Hospitalization, Other)
  Sender: FDA-Public Use
  Company Number: PHHY2012BR058513

PATIENT
  Sex: Male

DRUGS (4)
  1. DIOVAN [Suspect]
     Indication: BLOOD PRESSURE ABNORMAL
     Dosage: 1 DF, DAILY
  2. LASIX [Concomitant]
     Indication: RENAL IMPAIRMENT
  3. FLUOXETINE [Concomitant]
     Dosage: 20 MG, UNK
  4. ALENIA [Concomitant]
     Indication: EMPHYSEMA
     Dosage: 1 DF, UNK

REACTIONS (10)
  - BLOOD CREATININE INCREASED [None]
  - BLOOD UREA INCREASED [None]
  - EMPHYSEMA [None]
  - ANAEMIA [None]
  - ABASIA [None]
  - PAIN [None]
  - BLOOD PRESSURE INCREASED [None]
  - RENAL IMPAIRMENT [None]
  - PULMONARY OEDEMA [None]
  - OEDEMA [None]
